FAERS Safety Report 19681443 (Version 1)
Quarter: 2021Q3

REPORT INFORMATION
  Report Type: Spontaneous
  Country: US (occurrence: US)
  Receive Date: 20210810
  Receipt Date: 20210810
  Transmission Date: 20211014
  Serious: Yes (Other)
  Sender: FDA-Public Use
  Company Number: US-IGSA-BIG0014532

PATIENT
  Age: 35 Year
  Sex: Female
  Weight: 82.6 kg

DRUGS (8)
  1. LIDOCAINE. [Concomitant]
     Active Substance: LIDOCAINE
     Route: 061
  2. TOPIRAMATE. [Concomitant]
     Active Substance: TOPIRAMATE
  3. MELOXICAM. [Concomitant]
     Active Substance: MELOXICAM
  4. PHENTERMINE. [Concomitant]
     Active Substance: PHENTERMINE
  5. LINACLOTIDE [Concomitant]
     Active Substance: LINACLOTIDE
  6. GAMUNEX?C [Suspect]
     Active Substance: HUMAN IMMUNOGLOBULIN G
     Indication: AUTOIMMUNE NEUROPATHY
     Dosage: 30 GRAM, QD
     Route: 042
  7. PYRIDOSTIGMINE [Concomitant]
     Active Substance: PYRIDOSTIGMINE
  8. CAPSAICIN. [Concomitant]
     Active Substance: CAPSAICIN

REACTIONS (4)
  - Pain in extremity [Unknown]
  - Rash [Unknown]
  - Thrombophlebitis superficial [Unknown]
  - Livedo reticularis [Unknown]
